FAERS Safety Report 4436041-8 (Version None)
Quarter: 2004Q3

REPORT INFORMATION
  Report Type: 
  Country: None (occurrence: None)
  Receive Date: 20040726
  Receipt Date: 20040419
  Transmission Date: 20050211
  Serious: No
  Sender: FDA-Public Use
  Company Number: USA040465200

PATIENT
  Age: 58 Year
  Sex: Female
  Weight: 55 kg

DRUGS (3)
  1. FORTEO [Suspect]
     Indication: OSTEOPOROSIS
     Dosage: 20 UG/1 DAY
     Dates: start: 20040201
  2. LORAZEPAM [Concomitant]
  3. VIOXX [Concomitant]

REACTIONS (3)
  - CHEST DISCOMFORT [None]
  - INJECTION SITE ERYTHEMA [None]
  - SENSATION OF PRESSURE [None]
